FAERS Safety Report 4572677-1 (Version None)
Quarter: 2005Q1

REPORT INFORMATION
  Report Type: 
  Country: None (occurrence: None)
  Receive Date: 20050208
  Receipt Date: 20041119
  Transmission Date: 20050727
  Serious: No
  Sender: FDA-Public Use
  Company Number: US-GLAXOSMITHKLINE-A0534692A

PATIENT
  Age: 35 Year
  Sex: Female
  Weight: 68.6 kg

DRUGS (1)
  1. PAXIL CR [Suspect]
     Indication: INSOMNIA
     Route: 048
     Dates: start: 20030101, end: 20050122

REACTIONS (4)
  - LIBIDO DECREASED [None]
  - SLEEP DISORDER [None]
  - SOMNOLENCE [None]
  - WEIGHT INCREASED [None]
